FAERS Safety Report 7028079-1 (Version None)
Quarter: 2010Q4

REPORT INFORMATION
  Report Type: 
  Country: None (occurrence: None)
  Receive Date: 20101005
  Receipt Date: 20101001
  Transmission Date: 20110411
  Serious: Yes (Hospitalization)
  Sender: FDA-Public Use
  Company Number: US-BAYER-201035545NA

PATIENT
  Age: 54 Year
  Sex: Male

DRUGS (4)
  1. NEXAVAR [Suspect]
     Indication: HEPATIC NEOPLASM MALIGNANT
     Dosage: TOTAL DAILY DOSE: 400 MG  UNIT DOSE: 200 MG
     Route: 048
     Dates: start: 20100825
  2. FUROSEMIDE [Concomitant]
  3. DILAUDID [Concomitant]
  4. MORPHINE [Concomitant]

REACTIONS (2)
  - ABDOMINAL PAIN [None]
  - TRANSFUSION [None]
